FAERS Safety Report 13659452 (Version 2)
Quarter: 2018Q1

REPORT INFORMATION
  Report Type: Spontaneous
  Country: FR (occurrence: FR)
  Receive Date: 20170616
  Receipt Date: 20180302
  Transmission Date: 20180508
  Serious: Yes (Other)
  Sender: FDA-Public Use
  Company Number: PHHY2017FR063771

PATIENT
  Age: 41 Year
  Sex: Female

DRUGS (1)
  1. GILENYA [Suspect]
     Active Substance: FINGOLIMOD HYDROCHLORIDE
     Indication: MULTIPLE SCLEROSIS
     Dosage: UNK UNK, QD
     Route: 065
     Dates: start: 20170131

REACTIONS (11)
  - Alanine aminotransferase increased [Unknown]
  - Leukopenia [Recovering/Resolving]
  - Neutropenia [Recovering/Resolving]
  - Splenomegaly [Unknown]
  - Transaminases increased [Unknown]
  - Skin infection [Unknown]
  - Aspartate aminotransferase increased [Unknown]
  - Spleen disorder [Unknown]
  - Hepatocellular injury [Recovering/Resolving]
  - Abdominal discomfort [Unknown]
  - Lymphocyte count decreased [Unknown]

NARRATIVE: CASE EVENT DATE: 20170226
